FAERS Safety Report 22278925 (Version 1)
Quarter: 2023Q2

REPORT INFORMATION
  Report Type: Spontaneous
  Country: CA (occurrence: CA)
  Receive Date: 20230503
  Receipt Date: 20230503
  Transmission Date: 20230722
  Serious: Yes (Other)
  Sender: FDA-Public Use
  Company Number: CA-BRISTOL-MYERS SQUIBB COMPANY-2023-061035

PATIENT
  Sex: Female

DRUGS (1)
  1. OZANIMOD [Suspect]
     Active Substance: OZANIMOD
     Indication: Colitis ulcerative
     Dosage: DOSE : UNAV;     FREQ : UNAV

REACTIONS (1)
  - Blindness [Recovering/Resolving]
